FAERS Safety Report 22236777 (Version 1)
Quarter: 2023Q2

REPORT INFORMATION
  Report Type: Spontaneous
  Country: US (occurrence: US)
  Receive Date: 20230420
  Receipt Date: 20230420
  Transmission Date: 20230721
  Serious: No
  Sender: FDA-Public Use
  Company Number: US-ALLERGAN-2229625US

PATIENT
  Sex: Female

DRUGS (1)
  1. RESTASIS [Suspect]
     Active Substance: CYCLOSPORINE
     Indication: Glaucoma
     Dosage: 2 GTT, BID
     Route: 047
     Dates: start: 20220314

REACTIONS (6)
  - Eye disorder [Unknown]
  - Therapy interrupted [Unknown]
  - Off label use [Unknown]
  - Ocular discomfort [Unknown]
  - Product distribution issue [Unknown]
  - Product supply issue [Unknown]
